FAERS Safety Report 7665536-9 (Version None)
Quarter: 2011Q3

REPORT INFORMATION
  Report Type: 
  Country: None (occurrence: None)
  Receive Date: 20110806
  Receipt Date: 20110316
  Transmission Date: 20111222
  Serious: No
  Sender: FDA-Public Use
  Company Number: US-ABBOTT-11P-163-0711935-00

PATIENT
  Sex: Male
  Weight: 77.18 kg

DRUGS (5)
  1. ASPIRIN [Concomitant]
     Indication: PRODUCT USED FOR UNKNOWN INDICATION
     Dosage: DAILY AT BEDTIME
  2. NIASPAN [Suspect]
     Indication: TYPE IIA HYPERLIPIDAEMIA
     Dosage: DAILY AT BEDTIME
  3. NIASPAN [Suspect]
  4. CRESTOR [Concomitant]
     Indication: PRODUCT USED FOR UNKNOWN INDICATION
     Dosage: DAILY AT BEDTIME
  5. NIASPAN [Suspect]
     Indication: TYPE IIA HYPERLIPIDAEMIA
     Dosage: DAILY AT BEDTIME
     Dates: start: 20090301

REACTIONS (3)
  - SKIN WARM [None]
  - FLUSHING [None]
  - PRURITUS [None]
